FAERS Safety Report 17972414 (Version 1)
Quarter: 2020Q3

REPORT INFORMATION
  Report Type: Spontaneous
  Country: US (occurrence: US)
  Receive Date: 20200701
  Receipt Date: 20200701
  Transmission Date: 20201103
  Serious: Yes (Hospitalization)
  Sender: FDA-Public Use
  Company Number: None

PATIENT
  Age: 84 Year
  Sex: Female

DRUGS (9)
  1. ADVAIR DISKU [Concomitant]
  2. LEVOTHYROXIN [Concomitant]
     Active Substance: LEVOTHYROXINE
  3. METOPROL SUC [Concomitant]
  4. VYNDAMAX [Suspect]
     Active Substance: TAFAMIDIS
     Indication: AMYLOIDOSIS
     Route: 048
     Dates: start: 20190903
  5. LORATADINE. [Concomitant]
     Active Substance: LORATADINE
  6. MONTELUKAST [Concomitant]
     Active Substance: MONTELUKAST SODIUM
  7. ROSUVASTATIN. [Concomitant]
     Active Substance: ROSUVASTATIN
  8. FUROSEMIDE. [Concomitant]
     Active Substance: FUROSEMIDE
  9. ALLOPURINOL. [Concomitant]
     Active Substance: ALLOPURINOL

REACTIONS (2)
  - Intentional dose omission [None]
  - Pneumonia [None]

NARRATIVE: CASE EVENT DATE: 20200630
